FAERS Safety Report 24104454 (Version 1)
Quarter: 2024Q3

REPORT INFORMATION
  Report Type: Spontaneous
  Country: US (occurrence: None)
  Receive Date: 20240716
  Receipt Date: 20240716
  Transmission Date: 20241017
  Serious: No
  Sender: Public
  Company Number: None

PATIENT
  Sex: Male

DRUGS (1)
  1. VYNDAMAX [Suspect]
     Active Substance: TAFAMIDIS
     Indication: Post procedural hypoparathyroidism
     Dosage: FREQUENCY : DAILY;?
     Route: 048
     Dates: start: 202403

REACTIONS (2)
  - Dyspnoea [None]
  - Fluid retention [None]
